FAERS Safety Report 23530036 (Version 1)
Quarter: 2024Q1

REPORT INFORMATION
  Report Type: Spontaneous
  Country: RU (occurrence: RU)
  Receive Date: 20240216
  Receipt Date: 20240216
  Transmission Date: 20240409
  Serious: Yes (Hospitalization, Disabling, Other)
  Sender: FDA-Public Use
  Company Number: RU-Korea IPSEN-2024-01683

PATIENT
  Age: 56 Year
  Sex: Male

DRUGS (4)
  1. LANREOTIDE ACETATE [Suspect]
     Active Substance: LANREOTIDE ACETATE
     Indication: Acromegaly
     Dosage: 120 MG ONCE EVERY 28 DAYS
     Route: 058
     Dates: start: 201412, end: 20220221
  2. LANREOTIDE ACETATE [Suspect]
     Active Substance: LANREOTIDE ACETATE
     Indication: Pituitary tumour benign
  3. ACETYLCYSTEINE [Suspect]
     Active Substance: ACETYLCYSTEINE
     Indication: Product used for unknown indication
  4. CHOLECALCIFEROL [Concomitant]
     Active Substance: CHOLECALCIFEROL
     Indication: Vitamin D deficiency
     Dosage: 7000 IU ONCE DAILY FOR 4 WEEKS
     Route: 048
     Dates: start: 20221201

REACTIONS (8)
  - Cholecystitis [Unknown]
  - Dyspepsia [Unknown]
  - Pneumatosis [Unknown]
  - Cardiac failure [Unknown]
  - Faecaloma [Unknown]
  - Pancreatic disorder [Unknown]
  - Chronic gastritis [Unknown]
  - Weight decreased [Unknown]

NARRATIVE: CASE EVENT DATE: 20141201
